FAERS Safety Report 20886522 (Version 2)
Quarter: 2022Q2

REPORT INFORMATION
  Report Type: Report from Study
  Country: US (occurrence: US)
  Receive Date: 20220527
  Receipt Date: 20220531
  Transmission Date: 20220721
  Serious: No
  Sender: FDA-Public Use
  Company Number: US-NOVARTISTESTPH-NVSC2022US122469

PATIENT
  Age: 36 Year
  Sex: Female

DRUGS (2)
  1. KESIMPTA [Suspect]
     Active Substance: OFATUMUMAB
     Indication: Multiple sclerosis
     Dosage: 20 MG, QW
     Route: 058
     Dates: start: 20220510
  2. KESIMPTA [Suspect]
     Active Substance: OFATUMUMAB
     Dosage: UNK (3RD DOSE)
     Route: 065
     Dates: start: 20220524

REACTIONS (2)
  - Injection site extravasation [Unknown]
  - Incorrect dose administered by device [Recovered/Resolved]

NARRATIVE: CASE EVENT DATE: 20220524
